FAERS Safety Report 16547832 (Version 2)
Quarter: 2019Q3

REPORT INFORMATION
  Report Type: Spontaneous
  Country: US (occurrence: US)
  Receive Date: 20190709
  Receipt Date: 20190731
  Transmission Date: 20191004
  Serious: No
  Sender: FDA-Public Use
  Company Number: US-SA-2019SA180105

PATIENT
  Age: 39 Year
  Sex: Female

DRUGS (1)
  1. APIDRA [Suspect]
     Active Substance: INSULIN GLULISINE
     Indication: TYPE 1 DIABETES MELLITUS
     Dosage: UP TO 90 UNITS
     Route: 065
     Dates: start: 201712

REACTIONS (2)
  - Blood glucose fluctuation [Unknown]
  - Product quality issue [Unknown]
